FAERS Safety Report 5806181-7 (Version None)
Quarter: 2008Q3

REPORT INFORMATION
  Report Type: 
  Country: None (occurrence: None)
  Receive Date: 20080710
  Receipt Date: 20080704
  Transmission Date: 20090109
  Serious: Yes (Hospitalization)
  Sender: FDA-Public Use
  Company Number: JP-AVENTIS-200811690JP

PATIENT
  Age: 77 Year
  Sex: Female
  Weight: 61.5 kg

DRUGS (4)
  1. AMARYL [Suspect]
     Indication: DIABETES MELLITUS
     Route: 048
     Dates: start: 20050101, end: 20080516
  2. OLMETEC [Suspect]
     Indication: HYPERTENSION
     Route: 048
     Dates: end: 20080525
  3. LOCHOL                             /00638501/ [Suspect]
     Indication: HYPERLIPIDAEMIA
     Route: 048
     Dates: end: 20080525
  4. PROMAC                             /01312301/ [Suspect]
     Indication: GASTRITIS
     Route: 048
     Dates: end: 20080516

REACTIONS (9)
  - ANAEMIA MACROCYTIC [None]
  - ANOREXIA [None]
  - BLOOD BILIRUBIN UNCONJUGATED INCREASED [None]
  - BLOOD LACTATE DEHYDROGENASE INCREASED [None]
  - DISSEMINATED INTRAVASCULAR COAGULATION [None]
  - FATIGUE [None]
  - GLOSSITIS [None]
  - HAPTOGLOBIN DECREASED [None]
  - PANCYTOPENIA [None]
